FAERS Safety Report 12862522 (Version 5)
Quarter: 2017Q2

REPORT INFORMATION
  Report Type: Report from Study
  Country: DE (occurrence: DE)
  Receive Date: 20161019
  Receipt Date: 20170428
  Transmission Date: 20170830
  Serious: Yes (Hospitalization, Other)
  Sender: FDA-Public Use
  Company Number: DE-CELGENEUS-DEU-2016102496

PATIENT
  Age: 79 Year
  Sex: Female
  Weight: 77 kg

DRUGS (22)
  1. IBUPROFEN. [Concomitant]
     Active Substance: IBUPROFEN
     Indication: PAIN
     Dosage: 600 MG
     Route: 048
     Dates: start: 201605
  2. AMOXICILLIN. [Concomitant]
     Active Substance: AMOXICILLIN
     Indication: BRONCHITIS
     Dosage: 1 G
     Route: 065
     Dates: start: 20161014, end: 20161018
  3. CARBOPLATIN. [Suspect]
     Active Substance: CARBOPLATIN
     Dosage: AUC 4.5 MG/ML/DAY
     Route: 041
     Dates: start: 20160930
  4. FOSTER [Concomitant]
     Active Substance: BECLOMETHASONE\FORMOTEROL
     Indication: BRONCHITIS
     Dosage: 33.4 MICROGRAM
     Route: 065
     Dates: start: 20161014
  5. METOCLOPRAMID-HCL [Concomitant]
     Indication: PROPHYLAXIS OF NAUSEA AND VOMITING
     Dosage: 10 MG
     Route: 048
     Dates: start: 20160902
  6. INSIDON [Concomitant]
     Active Substance: OPIPRAMOL HYDROCHLORIDE
     Indication: ANXIETY
     Dosage: 50 MG
     Route: 048
     Dates: start: 201605
  7. ZOPICLON [Concomitant]
     Active Substance: ZOPICLONE
     Indication: INSOMNIA
     Dosage: 3.75 MG
     Route: 065
     Dates: start: 20161110, end: 20161113
  8. DENOSUMAB [Concomitant]
     Active Substance: DENOSUMAB
     Indication: METASTASES TO BONE
     Dosage: 120 MILLIGRAM
     Route: 058
     Dates: start: 20160801
  9. CARBOPLATIN. [Suspect]
     Active Substance: CARBOPLATIN
     Indication: NON-SMALL CELL LUNG CANCER
     Dosage: AUC 6 MG/ML/DAY
     Route: 041
     Dates: start: 20160902
  10. KALIUM CITRATE [Concomitant]
     Indication: HYPOKALAEMIA
     Dosage: 5.4 G
     Route: 065
     Dates: start: 20161109, end: 20161109
  11. CARBOPLATIN. [Suspect]
     Active Substance: CARBOPLATIN
     Dosage: AUC 3 MG/ML/DAY
     Route: 041
     Dates: start: 20161025, end: 20161102
  12. AMLODIPIN [Concomitant]
     Active Substance: AMLODIPINE BESYLATE
     Indication: HYPERTENSION
     Dosage: 5 MG
     Route: 048
     Dates: start: 2006
  13. ONDANSETRON [Concomitant]
     Active Substance: ONDANSETRON
     Indication: PROPHYLAXIS OF NAUSEA AND VOMITING
     Dosage: 4 MG
     Route: 048
     Dates: start: 20160902
  14. LEVOFLOXACIN. [Concomitant]
     Active Substance: LEVOFLOXACIN
     Indication: NEUTROPENIA
     Dosage: 500 MG
     Route: 048
     Dates: start: 20161008, end: 20161009
  15. ABRAXANE [Suspect]
     Active Substance: PACLITAXEL
     Dosage: 50 MG/M2
     Route: 041
     Dates: start: 20161014, end: 20161102
  16. PANTOPRAZOL [Concomitant]
     Active Substance: PANTOPRAZOLE SODIUM
     Indication: PROPHYLAXIS
     Dosage: 40 MG
     Route: 048
     Dates: start: 201605
  17. LEVOTHYROXIN-NATRIUM [Concomitant]
     Indication: HYPOTHYROIDISM
     Dosage: 124 MG
     Route: 048
     Dates: start: 1986
  18. NEBIVOLOL. [Concomitant]
     Active Substance: NEBIVOLOL
     Indication: HYPERTENSION
     Dosage: 5 MG
     Route: 048
     Dates: start: 2006
  19. CANDESARTAN. [Concomitant]
     Active Substance: CANDESARTAN
     Indication: HYPERTENSION
     Dosage: 32 MG
     Route: 048
     Dates: start: 2006
  20. NOVAMAINSULFON [Concomitant]
     Indication: PAIN
     Dosage: 500 MG
     Route: 048
     Dates: start: 20160818
  21. ABRAXANE [Suspect]
     Active Substance: PACLITAXEL
     Indication: NON-SMALL CELL LUNG CANCER
     Dosage: 100 MG/M2
     Route: 041
     Dates: start: 20160902, end: 20160929
  22. ABRAXANE [Suspect]
     Active Substance: PACLITAXEL
     Dosage: 75 MG/M2
     Route: 041
     Dates: start: 20160930, end: 20161007

REACTIONS (2)
  - Prerenal failure [Recovered/Resolved]
  - Febrile infection [Recovered/Resolved]

NARRATIVE: CASE EVENT DATE: 20161007
